FAERS Safety Report 26086856 (Version 2)
Quarter: 2025Q4

REPORT INFORMATION
  Report Type: Report from Study
  Country: US (occurrence: US)
  Receive Date: 20251125
  Receipt Date: 20251211
  Transmission Date: 20260118
  Serious: Yes (Other)
  Sender: ROCHE
  Company Number: US-ROCHE-10000436605

PATIENT
  Sex: Female

DRUGS (3)
  1. MYCOPHENOLATE MOFETIL [Suspect]
     Active Substance: MYCOPHENOLATE MOFETIL
     Indication: CREST syndrome
     Dosage: TAKE 2  TABLETS (1,000 MG TOTAL) BY MOUTH EVERY 12 HOURS
     Route: 048
  2. MYCOPHENOLATE MOFETIL [Suspect]
     Active Substance: MYCOPHENOLATE MOFETIL
     Indication: Interstitial lung disease
     Route: 048
  3. OXYGEN [Concomitant]
     Active Substance: OXYGEN

REACTIONS (6)
  - Autoimmune lung disease [Unknown]
  - Stress [Unknown]
  - Neoplasm malignant [Unknown]
  - Illness [Unknown]
  - Depression [Unknown]
  - Off label use [Unknown]
